FAERS Safety Report 9078392 (Version 1)
Quarter: 2013Q1

REPORT INFORMATION
  Report Type: Report from Study
  Country: US (occurrence: US)
  Receive Date: 20130130
  Receipt Date: 20130130
  Transmission Date: 20140127
  Serious: No
  Sender: FDA-Public Use
  Company Number: US-ABBOTT-12P-163-0974725-00

PATIENT
  Age: 54 Year
  Sex: Female

DRUGS (20)
  1. HUMIRA [Suspect]
     Indication: CROHN^S DISEASE
     Dates: start: 201204
  2. PREDNISONE [Concomitant]
     Indication: PRODUCT USED FOR UNKNOWN INDICATION
  3. BENADRYL [Concomitant]
     Indication: PRODUCT USED FOR UNKNOWN INDICATION
  4. MIRAPEX ER [Concomitant]
     Indication: RESTLESS LEGS SYNDROME
     Dosage: 75MG DAILY
  5. HYOSCYAMINE [Concomitant]
     Indication: AUTOMATIC BLADDER
     Dosage: .125MG DAILY
  6. MERCAPTOPURINE [Concomitant]
     Indication: CROHN^S DISEASE
     Dosage: 50MG 2 DAILY
  7. TEMAZEPAM [Concomitant]
     Indication: INSOMNIA
  8. ACYCLOVIR [Concomitant]
     Indication: HERPES ZOSTER
  9. ESTRACE [Concomitant]
     Indication: HORMONE LEVEL ABNORMAL
     Dosage: .01%
  10. ESTROVEN [Concomitant]
     Indication: PRODUCT USED FOR UNKNOWN INDICATION
     Dosage: OVER THE COUNTER
  11. B12 [Concomitant]
     Indication: PRODUCT USED FOR UNKNOWN INDICATION
     Dosage: MONTHLY
     Route: 050
  12. DESONIDE [Concomitant]
     Indication: RASH
     Dosage: .05%
  13. DESONIDE [Concomitant]
     Indication: COELIAC DISEASE
  14. NAPROXEN [Concomitant]
     Indication: PAIN
  15. LOMOTIL [Concomitant]
     Indication: DIARRHOEA
  16. ARBONNE-WOMEN^S DAILY POWER PACK [Concomitant]
     Indication: PRODUCT USED FOR UNKNOWN INDICATION
     Dosage: DAILY AT NIGHT
  17. CALCIUM [Concomitant]
     Indication: PRODUCT USED FOR UNKNOWN INDICATION
  18. PROAMEBA [Concomitant]
     Indication: PRODUCT USED FOR UNKNOWN INDICATION
  19. DULCOLAX [Concomitant]
     Indication: PRODUCT USED FOR UNKNOWN INDICATION
  20. CETIRIZINE HCL [Concomitant]
     Indication: MYCOTIC ALLERGY

REACTIONS (5)
  - Eating disorder [Not Recovered/Not Resolved]
  - Asthenia [Not Recovered/Not Resolved]
  - Muscle spasms [Not Recovered/Not Resolved]
  - Neck pain [Not Recovered/Not Resolved]
  - Weight increased [Not Recovered/Not Resolved]
